FAERS Safety Report 15057267 (Version 1)
Quarter: 2018Q2

REPORT INFORMATION
  Report Type: Spontaneous
  Country: US (occurrence: US)
  Receive Date: 20180604
  Receipt Date: 20180604
  Transmission Date: 20180711
  Serious: Yes (Life-Threatening)
  Sender: FDA-Public Use
  Company Number: None

PATIENT
  Age: 33 Year
  Sex: Male
  Weight: 123.75 kg

DRUGS (14)
  1. MIRALAX [Suspect]
     Active Substance: POLYETHYLENE GLYCOL 3350
     Indication: CONSTIPATION
     Dosage: ?          QUANTITY:1 CAP FULL (17G);?
     Route: 048
     Dates: start: 20180603, end: 20180603
  2. ATORVASTATIN [Concomitant]
     Active Substance: ATORVASTATIN
  3. ADVIL [Concomitant]
     Active Substance: IBUPROFEN
  4. TURMERIC [Concomitant]
     Active Substance: HERBALS\TURMERIC
  5. SONATA [Concomitant]
     Active Substance: ZALEPLON
  6. PROPRANOLOL [Concomitant]
     Active Substance: PROPRANOLOL HYDROCHLORIDE
  7. TRINTELLIX [Concomitant]
     Active Substance: VORTIOXETINE HYDROBROMIDE
  8. TYLENOL [Concomitant]
     Active Substance: ACETAMINOPHEN
  9. POTASSIUM MAGNESIUM ASPARTATE [Concomitant]
     Active Substance: MAGNESIUM ASPARTATE\POTASSIUM ASPARTATE
  10. VALERIAN ROOT [Concomitant]
     Active Substance: VALERIAN
  11. LORAZEPAM. [Concomitant]
     Active Substance: LORAZEPAM
  12. PANTROPRAZOLE [Concomitant]
  13. VITAMIN D3 [Concomitant]
     Active Substance: CHOLECALCIFEROL
  14. ALEVE [Concomitant]
     Active Substance: NAPROXEN SODIUM

REACTIONS (6)
  - Throat tightness [None]
  - Hypoaesthesia oral [None]
  - Dizziness [None]
  - Urticaria [None]
  - Ocular hyperaemia [None]
  - Nausea [None]

NARRATIVE: CASE EVENT DATE: 20180603
